FAERS Safety Report 5104575-9 (Version None)
Quarter: 2006Q3

REPORT INFORMATION
  Report Type: 
  Country: None (occurrence: None)
  Receive Date: 20060914
  Receipt Date: 20060905
  Transmission Date: 20061208
  Serious: Yes (Death)
  Sender: FDA-Public Use
  Company Number: US-JNJFOC-20060902130

PATIENT
  Age: 37 Year
  Sex: Female

DRUGS (4)
  1. RISPERIDONE [Suspect]
     Indication: DRUG USE FOR UNKNOWN INDICATION
  2. BUPROPION HCL [Suspect]
     Indication: DRUG USE FOR UNKNOWN INDICATION
  3. CLONAZEPAM [Suspect]
     Indication: DRUG USE FOR UNKNOWN INDICATION
  4. SALICYLATE [Suspect]
     Indication: DRUG USE FOR UNKNOWN INDICATION

REACTIONS (7)
  - ACUTE RESPIRATORY DISTRESS SYNDROME [None]
  - BLOOD PH DECREASED [None]
  - BODY TEMPERATURE INCREASED [None]
  - DRUG ABUSER [None]
  - HAEMODIALYSIS [None]
  - HEART RATE INCREASED [None]
  - MENTAL STATUS CHANGES [None]
